FAERS Safety Report 11190714 (Version 1)
Quarter: 2015Q2

REPORT INFORMATION
  Report Type: Report from Study
  Country: JP (occurrence: JP)
  Receive Date: 20150615
  Receipt Date: 20150615
  Transmission Date: 20150821
  Serious: Yes (Hospitalization)
  Sender: FDA-Public Use
  Company Number: JP-EISAI MEDICAL RESEARCH-EC-2015-006243

PATIENT
  Age: 12 Year
  Sex: Female
  Weight: 22 kg

DRUGS (12)
  1. INOVELON [Suspect]
     Active Substance: RUFINAMIDE
     Route: 048
     Dates: start: 20140212, end: 20140225
  2. INOVELON [Suspect]
     Active Substance: RUFINAMIDE
     Route: 048
     Dates: start: 20140312, end: 20140421
  3. INOVELON [Suspect]
     Active Substance: RUFINAMIDE
     Route: 048
     Dates: start: 20140430, end: 20140603
  4. INOVELON [Suspect]
     Active Substance: RUFINAMIDE
     Route: 048
     Dates: start: 20140604, end: 20140617
  5. TEGRETOL [Concomitant]
     Active Substance: CARBAMAZEPINE
  6. INOVELON [Suspect]
     Active Substance: RUFINAMIDE
     Route: 048
     Dates: start: 20140422, end: 20140429
  7. INOVELON [Suspect]
     Active Substance: RUFINAMIDE
     Route: 048
     Dates: start: 20140226, end: 20140311
  8. POTASSIUM BROMIDE [Concomitant]
     Active Substance: POTASSIUM BROMIDE
  9. ALEVIATIN [Concomitant]
     Active Substance: PHENYTOIN SODIUM
  10. INOVELON [Suspect]
     Active Substance: RUFINAMIDE
     Indication: LENNOX-GASTAUT SYNDROME
     Route: 048
     Dates: start: 20140115, end: 20140211
  11. DIAPP [Concomitant]
     Active Substance: DIAZEPAM
  12. DEPAKENE [Concomitant]
     Active Substance: VALPROIC ACID

REACTIONS (2)
  - Pneumonia aspiration [Recovering/Resolving]
  - Decreased appetite [Recovered/Resolved]

NARRATIVE: CASE EVENT DATE: 20140313
